FAERS Safety Report 14021397 (Version 2)
Quarter: 2018Q1

REPORT INFORMATION
  Report Type: Spontaneous
  Country: US (occurrence: US)
  Receive Date: 20170928
  Receipt Date: 20180118
  Transmission Date: 20180508
  Serious: No
  Sender: FDA-Public Use
  Company Number: US-ASTRAZENECA-2017SE98779

PATIENT
  Sex: Female
  Weight: 59 kg

DRUGS (1)
  1. ANASTROZOLE. [Suspect]
     Active Substance: ANASTROZOLE
     Indication: BREAST CANCER STAGE II
     Route: 048
     Dates: start: 2015

REACTIONS (5)
  - Yawning [Unknown]
  - White blood cell count decreased [Unknown]
  - Nausea [Unknown]
  - Vomiting [Unknown]
  - Bone pain [Unknown]
